FAERS Safety Report 9501662 (Version 1)
Quarter: 2013Q3

REPORT INFORMATION
  Report Type: Spontaneous
  Country: US (occurrence: US)
  Receive Date: 20130905
  Receipt Date: 20130905
  Transmission Date: 20140515
  Serious: Yes (Other)
  Sender: FDA-Public Use
  Company Number: US-ENDO PHARMACEUTICALS INC.-NYST20130005

PATIENT
  Age: 62 Year
  Sex: Female

DRUGS (1)
  1. NYSTATIN [Suspect]
     Indication: INFECTION
     Dosage: UNK
     Route: 048
     Dates: start: 201308, end: 201308

REACTIONS (1)
  - Throat tightness [Recovering/Resolving]
